FAERS Safety Report 6575166-8 (Version None)
Quarter: 2010Q1

REPORT INFORMATION
  Report Type: 
  Country: None (occurrence: None)
  Receive Date: 20100128
  Receipt Date: 20100118
  Transmission Date: 20100710
  Serious: Yes (Life-Threatening, Hospitalization)
  Sender: FDA-Public Use
  Company Number: PT-IGSA-IG825

PATIENT
  Age: 28 Year
  Sex: Female
  Weight: 53 kg

DRUGS (2)
  1. HUMAN NORMAL IMMUNOGLOBULIN, FLEBOGAMMADIF (LOT NUMBER: IBGK8X1X21) [Suspect]
     Indication: MYASTHENIA GRAVIS
     Dosage: 4 G, INTRAVENOUSLY, FROM NOVEMBER 2003
     Route: 042
     Dates: start: 20100104, end: 20100104
  2. PYRIDOSTIGMINE BROMIDE [Concomitant]

REACTIONS (7)
  - DIZZINESS [None]
  - HEADACHE [None]
  - HYPERTENSION [None]
  - HYPOKINESIA [None]
  - NAUSEA [None]
  - TACHYCARDIA [None]
  - TREMOR [None]
